FAERS Safety Report 8572587-9 (Version None)
Quarter: 2012Q3

REPORT INFORMATION
  Report Type: 
  Country: None (occurrence: None)
  Receive Date: 20120806
  Receipt Date: 20120727
  Transmission Date: 20120928
  Serious: Yes (Other)
  Sender: FDA-Public Use
  Company Number: JP-VERTEX PHARMACEUTICALS INC.-AE-2012-006316

PATIENT
  Age: 60 Year
  Sex: Male

DRUGS (20)
  1. REBETOL [Concomitant]
     Indication: HEPATITIS C
     Route: 048
     Dates: start: 20120121, end: 20120224
  2. REBETOL [Concomitant]
     Route: 048
     Dates: start: 20120303, end: 20120316
  3. PEG-INTRON [Concomitant]
     Indication: HEPATITIS C
     Route: 058
     Dates: start: 20120121
  4. TALION [Concomitant]
     Route: 048
     Dates: start: 20120121
  5. SELBEX [Concomitant]
     Route: 048
     Dates: start: 20120121, end: 20120427
  6. LEVOTHYROXINE SODIUM [Concomitant]
     Route: 048
  7. TELAVIC (TELAPREVIR) [Suspect]
     Indication: HEPATITIS C
     Route: 048
     Dates: start: 20120121, end: 20120302
  8. REBETOL [Concomitant]
     Route: 048
     Dates: start: 20120526, end: 20120629
  9. AMLODIPINE BESYLATE [Concomitant]
     Route: 048
  10. FLUVASTATIN SODIUM [Concomitant]
     Route: 048
     Dates: start: 20120121
  11. ALFAROL [Concomitant]
     Route: 048
     Dates: start: 20120121
  12. NEXIUM [Concomitant]
     Route: 048
     Dates: start: 20120121
  13. REBETOL [Concomitant]
     Route: 048
     Dates: start: 20120225
  14. REBETOL [Concomitant]
     Route: 048
     Dates: start: 20120630
  15. OMEPRAZOLE [Concomitant]
     Route: 048
     Dates: start: 20120407, end: 20120427
  16. VITAMIN B12 [Concomitant]
     Route: 048
  17. TELAVIC (TELAPREVIR) [Suspect]
     Route: 048
     Dates: start: 20120303, end: 20120316
  18. TELAVIC (TELAPREVIR) [Suspect]
     Route: 048
     Dates: start: 20120317, end: 20120413
  19. REBETOL [Concomitant]
     Route: 048
     Dates: start: 20120317, end: 20120525
  20. LOXONIN [Concomitant]
     Route: 048
     Dates: start: 20120121, end: 20120427

REACTIONS (2)
  - RENAL IMPAIRMENT [None]
  - HAEMOGLOBIN DECREASED [None]
